FAERS Safety Report 6971708-9 (Version None)
Quarter: 2010Q3

REPORT INFORMATION
  Report Type: 
  Country: None (occurrence: None)
  Receive Date: 20100908
  Receipt Date: 20100120
  Transmission Date: 20110219
  Serious: No
  Sender: FDA-Public Use
  Company Number: US-PFIZER INC-2010008926

PATIENT
  Sex: Male
  Weight: 115.65 kg

DRUGS (4)
  1. NARDIL [Suspect]
     Indication: DEPRESSION
     Route: 048
     Dates: start: 19930101
  2. NARDIL [Suspect]
     Indication: SOCIAL PHOBIA
  3. NARDIL [Suspect]
     Indication: ANXIETY
  4. VALIUM [Concomitant]
     Dosage: UNK

REACTIONS (1)
  - DRUG INEFFECTIVE [None]
